FAERS Safety Report 18279784 (Version 2)
Quarter: 2020Q4

REPORT INFORMATION
  Report Type: Spontaneous
  Country: FR (occurrence: FR)
  Receive Date: 20200917
  Receipt Date: 20201006
  Transmission Date: 20210113
  Serious: Yes (Hospitalization, Other)
  Sender: FDA-Public Use
  Company Number: FR-GLAXOSMITHKLINE-FR2020EME183236

PATIENT
  Weight: 79 kg

DRUGS (2)
  1. NUCALA [Suspect]
     Active Substance: MEPOLIZUMAB
     Indication: ASTHMA
     Dosage: 100 MG, Z (MONTHLY)
     Route: 058
     Dates: start: 20200715
  2. ANTI TNF [UNSPECIFIED] [Suspect]
     Active Substance: UNSPECIFIED INGREDIENT
     Indication: SAPHO SYNDROME
     Dosage: 100 MG, Z (MONTHLY)
     Route: 058
     Dates: start: 201404, end: 201409

REACTIONS (4)
  - Guillain-Barre syndrome [Unknown]
  - Multiple sclerosis [Unknown]
  - Myelitis [Unknown]
  - SAPHO syndrome [Unknown]
